FAERS Safety Report 14552175 (Version 3)
Quarter: 2018Q1

REPORT INFORMATION
  Report Type: Report from Study
  Country: US (occurrence: US)
  Receive Date: 20180220
  Receipt Date: 20180302
  Transmission Date: 20180509
  Serious: Yes (Hospitalization, Disabling)
  Sender: FDA-Public Use
  Company Number: US-ROCHE-2053245

PATIENT
  Age: 50 Year
  Sex: Male
  Weight: 73 kg

DRUGS (38)
  1. ACETAMINOPHEN. [Concomitant]
     Active Substance: ACETAMINOPHEN
     Route: 065
     Dates: start: 20160211, end: 20160218
  2. ACETAMINOPHEN. [Concomitant]
     Active Substance: ACETAMINOPHEN
     Route: 065
     Dates: start: 20150813, end: 20151215
  3. R-LIPOIC ACID [Concomitant]
     Route: 065
     Dates: start: 20141014
  4. ISOVUE [Concomitant]
     Active Substance: IOPAMIDOL
     Route: 065
     Dates: start: 20171226, end: 20171226
  5. OCRELIZUMAB. [Suspect]
     Active Substance: OCRELIZUMAB
     Route: 042
     Dates: start: 20160805
  6. ACETAMINOPHEN. [Concomitant]
     Active Substance: ACETAMINOPHEN
     Route: 065
     Dates: start: 20130511, end: 20130626
  7. DIPHENHYDRAMINE. [Concomitant]
     Active Substance: DIPHENHYDRAMINE
     Dosage: SUBSEQUENT DOSES RECEIVED ON 27/NOV/2012, 01/MAY/2013, 16/MAY/2013, 05/NOV/2013, 02/APR/2014, 16/APR
     Route: 065
     Dates: start: 20121114
  8. ARNICA CREAM [Concomitant]
     Indication: ANALGESIC THERAPY
     Route: 065
     Dates: start: 20140508
  9. VITAMIN B6 [Concomitant]
     Active Substance: PYRIDOXINE HYDROCHLORIDE
     Route: 065
     Dates: start: 20130901
  10. ONDANSETRON [Concomitant]
     Active Substance: ONDANSETRON
     Indication: NAUSEA
     Route: 065
     Dates: start: 20171223
  11. SKULLCAP [Concomitant]
     Active Substance: SCUTELLARIA LATERIFLORA
     Route: 065
     Dates: start: 20111101, end: 20140601
  12. ACETAMINOPHEN. [Concomitant]
     Active Substance: ACETAMINOPHEN
     Indication: PYREXIA
     Route: 065
     Dates: start: 20140403, end: 20140515
  13. ACETAMINOPHEN. [Concomitant]
     Active Substance: ACETAMINOPHEN
     Route: 065
     Dates: start: 20140323, end: 20140331
  14. METHYLPREDNISOLONE. [Concomitant]
     Active Substance: METHYLPREDNISOLONE
     Dosage: ALSO RECEIVED 40 MG
     Route: 065
     Dates: start: 20171226, end: 20171227
  15. PROTANDIM [Concomitant]
     Active Substance: DIETARY SUPPLEMENT
     Route: 065
     Dates: start: 20160416, end: 20170401
  16. VITAMIN E [Concomitant]
     Active Substance: .ALPHA.-TOCOPHEROL
     Route: 065
     Dates: start: 20151130
  17. ACETAMINOPHEN. [Concomitant]
     Active Substance: ACETAMINOPHEN
     Indication: RESPIRATORY SYMPTOM
     Route: 048
     Dates: start: 20131022
  18. PROTANDIM [Concomitant]
     Active Substance: DIETARY SUPPLEMENT
     Route: 065
     Dates: start: 20150802, end: 20160415
  19. BACLOFEN. [Concomitant]
     Active Substance: BACLOFEN
     Indication: MUSCLE SPASMS
     Route: 065
     Dates: start: 20171223, end: 20171229
  20. PROTANDIM [Concomitant]
     Active Substance: DIETARY SUPPLEMENT
     Indication: FATIGUE
     Route: 065
     Dates: start: 20150801, end: 20150821
  21. PROTANDIM [Concomitant]
     Active Substance: DIETARY SUPPLEMENT
     Route: 065
     Dates: start: 20170615
  22. VALIUM [Concomitant]
     Active Substance: DIAZEPAM
  23. OCRELIZUMAB. [Suspect]
     Active Substance: OCRELIZUMAB
     Indication: PRIMARY PROGRESSIVE MULTIPLE SCLEROSIS
     Dosage: TWO IV INFUSIONS OF OCRELIZUMAB 300 MG SEPARATED BY 14 DAYS FOR CYCLE 1 AND SINGLE IV INFUSION OF OC
     Route: 042
     Dates: start: 20160205
  24. OCRELIZUMAB. [Suspect]
     Active Substance: OCRELIZUMAB
     Route: 042
     Dates: start: 20171207
  25. ACETAMINOPHEN. [Concomitant]
     Active Substance: ACETAMINOPHEN
     Indication: HEADACHE
     Dosage: SUBSEQUENT DOSE ON 14/NOV/2012, 27/NOV/2012, 01/MAY/2013, 16/MAY/2013, 05/NOV/13, 02/APR/2014, 16/AP
     Route: 065
     Dates: start: 20121114
  26. ACETAMINOPHEN. [Concomitant]
     Active Substance: ACETAMINOPHEN
     Indication: BACK PAIN
     Dosage: SUBSEQUENT DOSE ON 01/SEP/2014
     Route: 065
     Dates: start: 20050701
  27. DIPHENHYDRAMINE. [Concomitant]
     Active Substance: DIPHENHYDRAMINE
     Route: 048
     Dates: start: 20131022
  28. ASHWAGANDHA [Concomitant]
     Active Substance: HERBALS
     Dosage: 0.5 TEASPOON
     Route: 065
     Dates: start: 20150401
  29. OCRELIZUMAB. [Suspect]
     Active Substance: OCRELIZUMAB
     Route: 042
     Dates: start: 20160721
  30. ACETAMINOPHEN. [Concomitant]
     Active Substance: ACETAMINOPHEN
     Route: 065
     Dates: start: 20171223
  31. METHYLPREDNISOLONE. [Concomitant]
     Active Substance: METHYLPREDNISOLONE
     Indication: PNEUMONIA
     Dosage: SUBSEQUENT DOSES RECEIVED ON, 27/NOV/2012,0 1/MAY/2013, 16/MAY/2013, 22/OCT/2013, 05/NOV/2013, 02/AP
     Route: 065
     Dates: start: 20121114
  32. VITAMIN E [Concomitant]
     Active Substance: .ALPHA.-TOCOPHEROL
     Route: 065
     Dates: start: 20110101, end: 20121101
  33. OCRELIZUMAB. [Suspect]
     Active Substance: OCRELIZUMAB
     Indication: PRIMARY PROGRESSIVE MULTIPLE SCLEROSIS
     Dosage: TWO INTRAVENOUS (IV) INFUSIONS OF BLINDED OCRELIZUMAB SEPARATED BY 14 DAYS IN EACH TREATMENT CYCLE O
     Route: 042
     Dates: start: 20121114, end: 20160204
  34. CANNABIDIOL [Concomitant]
     Active Substance: CANNABIDIOL
     Indication: MUSCLE SPASTICITY
     Dosage: RECIEVED ON 15NOV/2017
     Route: 065
     Dates: start: 20171014
  35. FOLIC ACID. [Concomitant]
     Active Substance: FOLIC ACID
     Route: 065
     Dates: start: 20110501
  36. TAMSULOSIN [Concomitant]
     Active Substance: TAMSULOSIN
     Indication: NEUROGENIC BLADDER
     Route: 065
     Dates: start: 20140508
  37. ONDANSETRON [Concomitant]
     Active Substance: ONDANSETRON
     Indication: VOMITING
  38. BACLOFEN. [Concomitant]
     Active Substance: BACLOFEN
     Indication: MUSCLE SPASTICITY
     Route: 065
     Dates: start: 20170627, end: 20170704

REACTIONS (2)
  - Urinary retention [Recovered/Resolved]
  - Pneumonia [Recovered/Resolved]

NARRATIVE: CASE EVENT DATE: 20171222
